FAERS Safety Report 7910152-4 (Version None)
Quarter: 2011Q4

REPORT INFORMATION
  Report Type: 
  Country: None (occurrence: None)
  Receive Date: 20111111
  Receipt Date: 20111104
  Transmission Date: 20120403
  Serious: Yes (Hospitalization)
  Sender: FDA-Public Use
  Company Number: US-AMGEN-USASP2011006094

PATIENT
  Age: 57 Year
  Sex: Male

DRUGS (3)
  1. ENBREL [Suspect]
     Indication: PSORIASIS
     Dosage: 50 MG, 2 TIMES/WK
     Dates: start: 20111020
  2. ENBREL [Suspect]
     Dosage: UNK
     Dates: start: 19980101
  3. ENBREL [Suspect]
     Dosage: UNK
     Dates: start: 20091001

REACTIONS (4)
  - PANCREATITIS [None]
  - PSORIASIS [None]
  - HEPATITIS C [None]
  - HEPATIC CIRRHOSIS [None]
